FAERS Safety Report 8543225 (Version 3)
Quarter: 2013Q4

REPORT INFORMATION
  Report Type: Report from Study
  Country: US (occurrence: US)
  Receive Date: 20120502
  Receipt Date: 20131125
  Transmission Date: 20140711
  Serious: Yes (Hospitalization, Other)
  Sender: FDA-Public Use
  Company Number: US-ELI_LILLY_AND_COMPANY-US201204008225

PATIENT
  Age: 57 Year
  Sex: Female

DRUGS (2)
  1. TERIPARATIDE [Suspect]
     Indication: OSTEOPOROSIS
     Dosage: 20 UG, QD
     Route: 065
     Dates: start: 20120321
  2. TERIPARATIDE [Suspect]
     Dosage: UNK, QD
     Route: 065

REACTIONS (7)
  - Malaise [Unknown]
  - Fall [Unknown]
  - Spinal fracture [Unknown]
  - Fall [Unknown]
  - Pelvic fracture [Unknown]
  - Nasopharyngitis [Not Recovered/Not Resolved]
  - Drug dose omission [Unknown]
